FAERS Safety Report 23152388 (Version 1)
Quarter: 2023Q4

REPORT INFORMATION
  Report Type: Spontaneous
  Country: CA (occurrence: CA)
  Receive Date: 20231107
  Receipt Date: 20231107
  Transmission Date: 20240110
  Serious: Yes (Other)
  Sender: FDA-Public Use
  Company Number: CA-JNJFOC-20231068098

PATIENT

DRUGS (2)
  1. NICORETTE [Suspect]
     Active Substance: NICOTINE
     Indication: Smoking cessation therapy
     Dosage: 1 DF (ONE GUM AT A TIME 15 TIMES A DAY)
     Route: 065
     Dates: start: 2003
  2. NICORETTE [Suspect]
     Active Substance: NICOTINE
     Dosage: 1 DF (ONE GUM AT A TIME, 10 TIMES A DAY)
     Route: 065
     Dates: start: 20231026

REACTIONS (3)
  - Product packaging quantity issue [Unknown]
  - Nicotine dependence [Not Recovered/Not Resolved]
  - Intentional product use issue [Not Recovered/Not Resolved]

NARRATIVE: CASE EVENT DATE: 20030101
